FAERS Safety Report 5806380-4 (Version None)
Quarter: 2008Q3

REPORT INFORMATION
  Report Type: 
  Country: None (occurrence: None)
  Receive Date: 20080708
  Receipt Date: 20080627
  Transmission Date: 20090109
  Serious: Yes (Other)
  Sender: FDA-Public Use
  Company Number: CHPA2008US09489

PATIENT
  Age: 88 Year
  Sex: Female

DRUGS (3)
  1. BENEFIBER W/ WHEAT DEXTRIN (NCH) (WHEAT DEXTRIN) POWDER [Suspect]
     Dosage: 3 TSP, QD, ORAL
     Route: 048
     Dates: start: 20080503, end: 20080608
  2. ANTIHYPERTENSIVES (NO INGREDIENTS/ SUBSTANCES) [Concomitant]
  3. DRUG THERAPY NOS (DRUG THERAPY NOS) [Concomitant]

REACTIONS (4)
  - GALLBLADDER DISORDER [None]
  - INCORRECT DOSE ADMINISTERED [None]
  - PANCREATIC CYST [None]
  - PHARMACEUTICAL PRODUCT COMPLAINT [None]
